FAERS Safety Report 5101249-5 (Version None)
Quarter: 2006Q3

REPORT INFORMATION
  Report Type: 
  Country: None (occurrence: None)
  Receive Date: 20060911
  Receipt Date: 20060828
  Transmission Date: 20061208
  Serious: Yes (Hospitalization, Other)
  Sender: FDA-Public Use
  Company Number: CA-AVENTIS-200618968GDDC

PATIENT
  Age: 69 Year
  Sex: Male

DRUGS (8)
  1. INSULIN GLARGINE [Suspect]
     Indication: DIABETES MELLITUS
     Route: 058
     Dates: start: 20021204
  2. OPTIPEN (INSULIN PUMP) [Suspect]
     Indication: DIABETES MELLITUS
  3. CODE UNBROKEN [Suspect]
     Dates: start: 20021204
  4. ACETYLSALICYLIC ACID [Concomitant]
     Indication: MYOCARDIAL ISCHAEMIA
     Dates: start: 20020801
  5. NIFEDIPINE [Concomitant]
     Indication: HYPERTENSION
     Dates: start: 20010101
  6. SIMVASTATIN [Concomitant]
     Indication: DYSLIPIDAEMIA
     Dates: start: 20020801
  7. ZOPLICONE [Concomitant]
     Indication: INSOMNIA
  8. PANTOPRAZOL [Concomitant]
     Indication: DYSPEPSIA

REACTIONS (5)
  - CHEST PAIN [None]
  - DIZZINESS [None]
  - FATIGUE [None]
  - HYPOGLYCAEMIA [None]
  - VENTRICULAR EXTRASYSTOLES [None]
